FAERS Safety Report 7117355-X (Version None)
Quarter: 2010Q4

REPORT INFORMATION
  Report Type: 
  Country: None (occurrence: None)
  Receive Date: 20101122
  Receipt Date: 20101115
  Transmission Date: 20110411
  Serious: Yes (Other)
  Sender: FDA-Public Use
  Company Number: IL-PFIZER INC-2010140510

PATIENT
  Age: 60 Year
  Sex: Male

DRUGS (1)
  1. VIAGRA [Suspect]
     Dosage: 100 MG, 2X/DAY

REACTIONS (3)
  - NERVE DEGENERATION [None]
  - PRODUCT COUNTERFEIT [None]
  - WEIGHT DECREASED [None]
